FAERS Safety Report 24662378 (Version 1)
Quarter: 2024Q4

REPORT INFORMATION
  Report Type: Spontaneous
  Country: US (occurrence: None)
  Receive Date: 20241125
  Receipt Date: 20241125
  Transmission Date: 20250115
  Serious: Yes (Hospitalization, Other)
  Sender: MDD OPERATIONS
  Company Number: US-MDD US Operations-MDD202406-002274

PATIENT
  Age: 76 Year
  Sex: Female
  Weight: 96.16 kg

DRUGS (27)
  1. APOKYN [Suspect]
     Active Substance: APOMORPHINE HYDROCHLORIDE
     Indication: Parkinson^s disease
     Route: 058
  2. APOKYN [Suspect]
     Active Substance: APOMORPHINE HYDROCHLORIDE
     Dosage: STARTED 3 YEARS AGO, BEFORE 2022, MIGHT BE 2021
     Route: 058
  3. LEVOTHYROXINE [Concomitant]
     Active Substance: LEVOTHYROXINE
     Dosage: 125 MILLIGRAM
  4. RYTARY [Concomitant]
     Active Substance: CARBIDOPA\LEVODOPA
  5. RYTARY [Concomitant]
     Active Substance: CARBIDOPA\LEVODOPA
  6. RYTARY [Concomitant]
     Active Substance: CARBIDOPA\LEVODOPA
  7. NAMENDA [Concomitant]
     Active Substance: MEMANTINE HYDROCHLORIDE
  8. ZINC [Concomitant]
     Active Substance: ZINC
  9. RASAGILINE [Concomitant]
     Active Substance: RASAGILINE
  10. VITAMIN D3 [Concomitant]
     Active Substance: CHOLECALCIFEROL
  11. VITAMIN D3 [Concomitant]
     Active Substance: CHOLECALCIFEROL
  12. B1 [Concomitant]
     Dosage: NOT PROVIDED
  13. B 12 [Concomitant]
     Dosage: NOT PROVIDED
  14. MIRAPEX [Concomitant]
     Active Substance: PRAMIPEXOLE DIHYDROCHLORIDE
     Dosage: 2.25
  15. POTASSIUM CHLORIDE [Concomitant]
     Active Substance: POTASSIUM CHLORIDE
     Dosage: NOT PROVIDED
  16. MAGNESIUM [Concomitant]
     Active Substance: MAGNESIUM
     Dosage: NOT PROVIDED
  17. Tramazac [Concomitant]
     Dosage: NOT PROVIDED
  18. METAFOLATE [Concomitant]
     Dosage: NOT PROVIDED
  19. FUROSEMIDE [Concomitant]
     Active Substance: FUROSEMIDE
  20. CRESTOR [Concomitant]
     Active Substance: ROSUVASTATIN CALCIUM
     Dosage: NOT PROVIDED
  21. COENZYME Q10 [Concomitant]
     Active Substance: DIETARY SUPPLEMENT\UBIDECARENONE
     Dosage: OUT OF 100 EACH.
  22. SEROQUEL [Concomitant]
     Active Substance: QUETIAPINE FUMARATE
     Dosage: NOT PROVIDED
  23. CLONAZEPAM [Concomitant]
     Active Substance: CLONAZEPAM
     Dosage: NOT PROVIDED
  24. GABAPENTIN [Concomitant]
     Active Substance: GABAPENTIN
  25. MELATONIN [Concomitant]
     Active Substance: MELATONIN
     Dosage: NOT PROVIDED
  26. ENALAPRIL [Concomitant]
     Active Substance: ENALAPRIL
     Dosage: NOT PROVIDED
  27. SINEMET [Concomitant]
     Active Substance: CARBIDOPA\LEVODOPA
     Dosage: 50- 200 MG

REACTIONS (12)
  - Face injury [Unknown]
  - Eye contusion [Unknown]
  - Fall [Recovered/Resolved]
  - Device dislocation [Unknown]
  - Device dislocation [Unknown]
  - Fall [Unknown]
  - Dizziness [Unknown]
  - Urinary tract infection [Unknown]
  - Somnambulism [Recovered/Resolved]
  - Contusion [Recovered/Resolved]
  - Device issue [Unknown]
  - Device breakage [Unknown]

NARRATIVE: CASE EVENT DATE: 20240530
